FAERS Safety Report 9799470 (Version 2)
Quarter: 2014Q1

REPORT INFORMATION
  Report Type: Report from Study
  Country: DE (occurrence: TR)
  Receive Date: 20140106
  Receipt Date: 20140116
  Transmission Date: 20141002
  Serious: Yes (Other)
  Sender: FDA-Public Use
  Company Number: DE-ACTELION-A-US2013-93225

PATIENT
  Age: 78 Year
  Sex: Female

DRUGS (1)
  1. VENTAVIS [Suspect]
     Indication: PULMONARY ARTERIAL HYPERTENSION
     Dosage: UNK, 9X1
     Route: 055
     Dates: start: 20131007, end: 20131226

REACTIONS (1)
  - Fistula [Not Recovered/Not Resolved]
